FAERS Safety Report 24692742 (Version 1)
Quarter: 2024Q4

REPORT INFORMATION
  Report Type: Spontaneous
  Country: MX (occurrence: MX)
  Receive Date: 20241203
  Receipt Date: 20241203
  Transmission Date: 20250114
  Serious: Yes (Disabling)
  Sender: ROCHE
  Company Number: MX-ROCHE-10000101449

PATIENT
  Age: 76 Year
  Sex: Female

DRUGS (2)
  1. VABYSMO [Suspect]
     Active Substance: FARICIMAB-SVOA
     Indication: Neovascular age-related macular degeneration
     Dosage: DOSE WAS NOT REPORTED.
     Route: 050
     Dates: start: 20240622, end: 20240622
  2. VABYSMO [Suspect]
     Active Substance: FARICIMAB-SVOA
     Indication: Age-related macular degeneration

REACTIONS (3)
  - Vasculitis [Not Recovered/Not Resolved]
  - Uveitis [Unknown]
  - Vitreous disorder [Unknown]

NARRATIVE: CASE EVENT DATE: 20240729
